FAERS Safety Report 5855643-5 (Version None)
Quarter: 2008Q3

REPORT INFORMATION
  Report Type: 
  Country: None (occurrence: None)
  Receive Date: 20080823
  Receipt Date: 20080814
  Transmission Date: 20090109
  Serious: Yes (Death)
  Sender: FDA-Public Use
  Company Number: US-ELI_LILLY_AND_COMPANY-US200807000576

PATIENT
  Sex: Male
  Weight: 132.88 kg

DRUGS (11)
  1. BYETTA [Suspect]
     Indication: TYPE 2 DIABETES MELLITUS
     Dosage: 5 UG, 2/D
     Dates: start: 20070420, end: 20070522
  2. BYETTA [Suspect]
     Dosage: 10 UG, 2/D
     Dates: end: 20070924
  3. GLIPIZIDE [Concomitant]
     Indication: TYPE 2 DIABETES MELLITUS
     Dosage: 10 MG, 2/D
  4. METFORMIN [Concomitant]
     Indication: TYPE 2 DIABETES MELLITUS
     Dosage: 2000 MG, DAILY (1/D)
  5. DIOVAN [Concomitant]
     Indication: HYPERTENSION
     Dosage: 80 MG, DAILY (1/D)
  6. LEVOTHYROXINE [Concomitant]
     Indication: HYPOTHYROIDISM
     Dosage: 75 UG, DAILY (1/D)
  7. DICLOFENAC [Concomitant]
     Indication: OSTEOARTHRITIS
     Dosage: 75 MG, DAILY (1/D)
  8. MAGNESIUM SULFATE [Concomitant]
     Dosage: UNK, DAILY (1/D)
  9. CORAL CALCIUM [Concomitant]
     Dosage: UNK, 2/D
  10. MULTI-VITAMIN [Concomitant]
  11. ASPIRIN [Concomitant]
     Indication: PROPHYLAXIS
     Dosage: 81 MG, DAILY (1/D)

REACTIONS (6)
  - BLOOD GLUCOSE INCREASED [None]
  - CONSTIPATION [None]
  - DYSPNOEA EXERTIONAL [None]
  - FATIGUE [None]
  - INSOMNIA [None]
  - VENTRICULAR FIBRILLATION [None]
